FAERS Safety Report 8524531-8 (Version None)
Quarter: 2012Q3

REPORT INFORMATION
  Report Type: 
  Country: None (occurrence: None)
  Receive Date: 20120720
  Receipt Date: 20120221
  Transmission Date: 20120928
  Serious: No
  Sender: FDA-Public Use
  Company Number: US-MYLANLABS-2012S1003416

PATIENT
  Age: 6 Decade
  Sex: Male
  Weight: 67.59 kg

DRUGS (1)
  1. VENLAFAXINE HYDROCHOLRIDE [Suspect]
     Indication: POST-TRAUMATIC STRESS DISORDER

REACTIONS (1)
  - ABNORMAL DREAMS [None]
